FAERS Safety Report 5780359-3 (Version None)
Quarter: 2008Q2

REPORT INFORMATION
  Report Type: 
  Country: None (occurrence: None)
  Receive Date: 20080620
  Receipt Date: 20080613
  Transmission Date: 20081010
  Serious: Yes (Hospitalization)
  Sender: FDA-Public Use
  Company Number: B0525117A

PATIENT
  Age: 77 Year
  Sex: Male

DRUGS (5)
  1. AVODART [Suspect]
     Dosage: .5MG PER DAY
     Route: 048
  2. PLAVIX [Concomitant]
     Dosage: 75MG PER DAY
  3. ALFUZOSINE [Concomitant]
     Dosage: 10MG PER DAY
  4. PERINDOPRIL ERBUMINE [Concomitant]
     Dosage: 4MG PER DAY
  5. MANIDIPINE [Concomitant]
     Dosage: 20MG PER DAY

REACTIONS (3)
  - ALOPECIA [None]
  - CAROTID ARTERY STENOSIS [None]
  - HAIR DISORDER [None]
